FAERS Safety Report 12126596 (Version 4)
Quarter: 2016Q2

REPORT INFORMATION
  Report Type: Spontaneous
  Country: BR (occurrence: BR)
  Receive Date: 20160229
  Receipt Date: 20160620
  Transmission Date: 20160815
  Serious: Yes (Hospitalization, Other)
  Sender: FDA-Public Use
  Company Number: BR-PFIZER INC-2016118864

PATIENT
  Age: 15 Year
  Sex: Female
  Weight: 67 kg

DRUGS (5)
  1. DORFLEX [Concomitant]
     Active Substance: CAFFEINE\DIPYRONE\ORPHENADRINE
     Indication: MIGRAINE
     Dosage: 1 DF, UNK
  2. DOSTINEX [Suspect]
     Active Substance: CABERGOLINE
     Indication: BLOOD PROLACTIN INCREASED
     Dosage: 1 TABLET WEEKLY
     Dates: start: 2006
  3. DOSTINEX [Suspect]
     Active Substance: CABERGOLINE
     Dosage: 2 TABLETS WEEKLY
  4. DORFLEX [Concomitant]
     Active Substance: CAFFEINE\DIPYRONE\ORPHENADRINE
     Indication: HEADACHE
  5. DOSTINEX [Suspect]
     Active Substance: CABERGOLINE
     Dosage: 0.5 MG, 2X/WEEK
     Dates: start: 2008

REACTIONS (9)
  - Headache [Unknown]
  - Pituitary tumour [Not Recovered/Not Resolved]
  - Calcification metastatic [Not Recovered/Not Resolved]
  - Vision blurred [Recovered/Resolved]
  - Drug ineffective [Not Recovered/Not Resolved]
  - Haemorrhage [Recovered/Resolved]
  - Visual impairment [Recovered/Resolved]
  - Product use issue [Not Recovered/Not Resolved]
  - Rhinorrhoea [Recovered/Resolved]

NARRATIVE: CASE EVENT DATE: 2006
